FAERS Safety Report 7991321-4 (Version None)
Quarter: 2011Q4

REPORT INFORMATION
  Report Type: 
  Country: None (occurrence: None)
  Receive Date: 20111219
  Receipt Date: 20111217
  Transmission Date: 20120403
  Serious: Yes (Other)
  Sender: FDA-Public Use
  Company Number: US-PFIZER INC-2011307025

PATIENT
  Sex: Female

DRUGS (3)
  1. LIPITOR [Suspect]
     Indication: BLOOD CHOLESTEROL ABNORMAL
     Dosage: 40 MG, UNK
     Route: 048
     Dates: start: 20100101
  2. PLAVIX [Interacting]
     Dosage: 75 MG, UNK
     Route: 048
  3. LIPITOR [Interacting]
     Indication: LOW DENSITY LIPOPROTEIN ABNORMAL

REACTIONS (3)
  - MYALGIA [None]
  - DRUG INTERACTION [None]
  - ARTHRALGIA [None]
